FAERS Safety Report 7964818-0 (Version None)
Quarter: 2011Q4

REPORT INFORMATION
  Report Type: 
  Country: None (occurrence: None)
  Receive Date: 20111208
  Receipt Date: 20111128
  Transmission Date: 20120403
  Serious: Yes (Hospitalization)
  Sender: FDA-Public Use
  Company Number: PHHY2011FR105034

PATIENT
  Age: 77 Year
  Sex: Female

DRUGS (3)
  1. MOBIC [Suspect]
     Dosage: UNK,
     Dates: end: 20110411
  2. IMMUNE GLOBULIN (HUMAN) [Suspect]
     Dosage: 30 G, DAILY
     Dates: start: 20110407, end: 20110411
  3. VALSARTAN  AND HYDROCHLOROTHIAZIDE [Suspect]
     Dosage: UNK,
     Route: 048
     Dates: end: 20110412

REACTIONS (4)
  - BLOOD CREATININE INCREASED [None]
  - DIARRHOEA [None]
  - RENAL FAILURE [None]
  - POLYNEUROPATHY [None]
